FAERS Safety Report 12467475 (Version 1)
Quarter: 2016Q2

REPORT INFORMATION
  Report Type: Spontaneous
  Country: US (occurrence: None)
  Receive Date: 20160614
  Receipt Date: 20160614
  Transmission Date: 20160815
  Serious: No
  Sender: FDA-Public Use
  Company Number: None

PATIENT
  Age: 7 Year
  Sex: Male
  Weight: 24.04 kg

DRUGS (1)
  1. ARIPIPRAZOLE. [Suspect]
     Active Substance: ARIPIPRAZOLE
     Indication: TOURETTE^S DISORDER
     Dosage: AFTER DINNER HS
     Route: 048
     Dates: start: 20160511, end: 20160531

REACTIONS (6)
  - Headache [None]
  - Product substitution issue [None]
  - Drug ineffective [None]
  - Decreased appetite [None]
  - Oropharyngeal pain [None]
  - Therapeutic response changed [None]

NARRATIVE: CASE EVENT DATE: 20160525
